FAERS Safety Report 18976106 (Version 2)
Quarter: 2021Q2

REPORT INFORMATION
  Report Type: Spontaneous
  Country: US (occurrence: US)
  Receive Date: 20210305
  Receipt Date: 20210526
  Transmission Date: 20210717
  Serious: No
  Sender: FDA-Public Use
  Company Number: US-GALDERMA-US2020042361

PATIENT
  Age: 33 Year
  Sex: Female

DRUGS (7)
  1. PROACTIV MD DAILY OIL CONTROL SPF 30 [Suspect]
     Active Substance: AVOBENZONE\OCTISALATE\OCTOCRYLENE
     Indication: RASH
     Route: 061
     Dates: start: 20200820
  2. PROACTIV MD BALANCING TONER [Concomitant]
     Active Substance: COSMETICS
     Indication: RASH
     Route: 061
     Dates: start: 20200820
  3. PROACTIV EYE BRIGHTENING SERUM [Concomitant]
     Active Substance: COSMETICS
     Indication: RASH
     Route: 061
     Dates: start: 20200820
  4. PROACTIV MD DEEP CLEANSING FACE WASH [Concomitant]
     Active Substance: COSMETICS
     Indication: RASH
     Route: 061
     Dates: start: 20200820
  5. PROACTIV AMAZONIAN CLAY MASK [Concomitant]
     Indication: RASH
     Route: 061
     Dates: start: 20200820
  6. VITAMINS [Concomitant]
     Active Substance: VITAMINS
     Indication: PRODUCT USED FOR UNKNOWN INDICATION
  7. PROACTIV MD ADAPALENE ACNE TREATMENT [Suspect]
     Active Substance: ADAPALENE
     Indication: RASH
     Dosage: 0.1%
     Route: 061
     Dates: start: 20200820

REACTIONS (4)
  - Overdose [Recovered/Resolved]
  - Rash [Recovering/Resolving]
  - Inappropriate schedule of product administration [Recovered/Resolved]
  - Product use in unapproved indication [Recovered/Resolved]

NARRATIVE: CASE EVENT DATE: 20200820
